FAERS Safety Report 12495244 (Version 1)
Quarter: 2016Q2

REPORT INFORMATION
  Report Type: Report from Study
  Country: NL (occurrence: NL)
  Receive Date: 20160624
  Receipt Date: 20160624
  Transmission Date: 20160815
  Serious: Yes (Hospitalization)
  Sender: FDA-Public Use
  Company Number: NL-ROCHE-1775871

PATIENT
  Age: 69 Year
  Sex: Male
  Weight: 73.2 kg

DRUGS (4)
  1. RO 6958688 (T-CELL BISPECIFIC MONOCLONAL ANTIBODY) [Suspect]
     Active Substance: INVESTIGATIONAL PRODUCT
     Indication: NEOPLASM
     Dosage: ON 09/JUN/2016, THE PATIENT RECEIVED THE MOST RECENT DOSE PRIOR TO SERIOUS ADVERSE EVENT.
     Route: 042
     Dates: start: 20160609
  2. AMLODIPINE [Concomitant]
     Active Substance: AMLODIPINE BESYLATE
     Route: 065
     Dates: start: 20160609
  3. ISOPHANE INSULIN [Concomitant]
     Active Substance: INSULIN NOS
     Dosage: 16-18 UNITS
     Route: 065
     Dates: start: 20160324
  4. OBINUTUZUMAB [Suspect]
     Active Substance: OBINUTUZUMAB
     Indication: NEOPLASM
     Dosage: ON 27/MAY/2016, THE PATIENT RECEIVED THE MOST RECENT DOSE PRIOR TO  PRIOR TO SERIOUS ADVERSE EVENT.
     Route: 042
     Dates: start: 20160527

REACTIONS (4)
  - Malaise [Recovered/Resolved]
  - Vomiting [None]
  - Influenza like illness [None]
  - Abdominal pain upper [None]

NARRATIVE: CASE EVENT DATE: 20160610
